FAERS Safety Report 5247830-4 (Version None)
Quarter: 2007Q1

REPORT INFORMATION
  Report Type: 
  Country: None (occurrence: None)
  Receive Date: 20070227
  Receipt Date: 20070227
  Transmission Date: 20070707
  Serious: Yes (Other)
  Sender: FDA-Public Use
  Company Number: None

PATIENT
  Age: 65 Year
  Sex: Female
  Weight: 58.0604 kg

DRUGS (2)
  1. POLYTRIM [Suspect]
     Indication: CONJUNCTIVITIS
     Dosage: 1 DROP Q. 3 HOURS INTRAOCULAR
     Route: 031
     Dates: start: 20070224, end: 20070224
  2. POLYTRIM [Suspect]
     Indication: KERATITIS
     Dosage: 1 DROP Q. 3 HOURS INTRAOCULAR
     Route: 031
     Dates: start: 20070224, end: 20070224

REACTIONS (4)
  - CORNEAL DISORDER [None]
  - EYE IRRITATION [None]
  - EYE PAIN [None]
  - OCULAR HYPERAEMIA [None]
